FAERS Safety Report 5959210-4 (Version None)
Quarter: 2008Q4

REPORT INFORMATION
  Report Type: 
  Country: None (occurrence: None)
  Receive Date: 20081120
  Receipt Date: 20080627
  Transmission Date: 20090506
  Serious: No
  Sender: FDA-Public Use
  Company Number: A0735426A

PATIENT
  Age: 32 Year
  Sex: Male

DRUGS (1)
  1. BUPROPION HYDROCHLORIDE [Suspect]
     Indication: DRUG USE FOR UNKNOWN INDICATION
     Dosage: 100MG PER DAY
     Route: 048
     Dates: start: 20080519, end: 20080603

REACTIONS (6)
  - ACNE [None]
  - CHEST DISCOMFORT [None]
  - MYALGIA [None]
  - PYREXIA [None]
  - RASH [None]
  - SERUM SICKNESS [None]
